FAERS Safety Report 14837705 (Version 1)
Quarter: 2018Q2

REPORT INFORMATION
  Report Type: Spontaneous
  Country: DE (occurrence: DE)
  Receive Date: 20180502
  Receipt Date: 20180502
  Transmission Date: 20180711
  Serious: Yes (Hospitalization)
  Sender: FDA-Public Use
  Company Number: DE-SA-2018SA113944

PATIENT
  Age: 77 Year
  Sex: Female
  Weight: 87 kg

DRUGS (15)
  1. CLOPIDOGREL BISULFATE. [Suspect]
     Active Substance: CLOPIDOGREL BISULFATE
     Route: 048
  2. XIPAMIDE [Concomitant]
     Active Substance: XIPAMIDE
     Route: 048
  3. FENTANYL. [Concomitant]
     Active Substance: FENTANYL
     Route: 062
  4. SIMVASTATIN. [Concomitant]
     Active Substance: SIMVASTATIN
     Route: 048
  5. ISOPHANE INSULIN [Concomitant]
     Active Substance: INSULIN NOS
     Dosage: SLUTION FOR INFUSION INJECTION
     Route: 058
  6. TORASEMID [Concomitant]
     Active Substance: TORSEMIDE
     Route: 065
  7. MOLSIDOMINE [Concomitant]
     Active Substance: MOLSIDOMINE
     Route: 048
  8. ACETYLSALICYLIC ACID [Suspect]
     Active Substance: ASPIRIN
     Route: 048
  9. PANTOPRAZOL [Concomitant]
     Active Substance: PANTOPRAZOLE SODIUM
     Route: 048
  10. BISOPROLOL [Concomitant]
     Active Substance: BISOPROLOL
     Route: 048
  11. APIXABAN [Suspect]
     Active Substance: APIXABAN
     Route: 048
  12. TIMOLOL. [Concomitant]
     Active Substance: TIMOLOL
     Route: 065
  13. PREDNISOLON [Concomitant]
     Active Substance: PREDNISOLONE
     Route: 048
  14. LEVOTHYROXINE SODIUM. [Concomitant]
     Active Substance: LEVOTHYROXINE SODIUM
     Route: 048
  15. TORASEMID [Concomitant]
     Active Substance: TORSEMIDE
     Route: 048

REACTIONS (5)
  - Dyspnoea [Unknown]
  - Haematochezia [Unknown]
  - Angina pectoris [Unknown]
  - Gastrointestinal haemorrhage [Unknown]
  - Anaemia [Unknown]
